FAERS Safety Report 5673126-2 (Version None)
Quarter: 2008Q1

REPORT INFORMATION
  Report Type: 
  Country: None (occurrence: None)
  Receive Date: 20080319
  Receipt Date: 20080314
  Transmission Date: 20080703
  Serious: Yes (Other)
  Sender: FDA-Public Use
  Company Number: FR-AVENTIS-200810366FR

PATIENT
  Age: 62 Year
  Sex: Male

DRUGS (3)
  1. KETEK [Suspect]
     Indication: INFLUENZA
     Route: 048
     Dates: start: 20080110, end: 20080115
  2. PARACETAMOL [Concomitant]
     Indication: INFLUENZA
     Route: 048
  3. TOPLEXIL                           /01513001/ [Concomitant]
     Indication: INFLUENZA
     Route: 048

REACTIONS (2)
  - AGEUSIA [None]
  - ANOSMIA [None]
